FAERS Safety Report 21702124 (Version 1)
Quarter: 2022Q4

REPORT INFORMATION
  Report Type: Spontaneous
  Country: US (occurrence: US)
  Receive Date: 20221208
  Receipt Date: 20221208
  Transmission Date: 20230112
  Serious: Yes (Hospitalization, Other)
  Sender: FDA-Public Use
  Company Number: US-PAIPHARMA-2022-US-028724

PATIENT
  Age: 72 Year
  Sex: Female

DRUGS (1)
  1. SULFAMETHOXAZOLE\TRIMETHOPRIM [Suspect]
     Active Substance: SULFAMETHOXAZOLE\TRIMETHOPRIM
     Indication: Abscess limb
     Dosage: 800 MG AND 160 MG

REACTIONS (1)
  - Hyponatraemia [Recovered/Resolved]
